FAERS Safety Report 9331354 (Version 1)
Quarter: 2013Q2

REPORT INFORMATION
  Report Type: Spontaneous
  Country: US (occurrence: US)
  Receive Date: 20130605
  Receipt Date: 20130605
  Transmission Date: 20140414
  Serious: No
  Sender: FDA-Public Use
  Company Number: US-TARO-2013P1003648

PATIENT
  Age: 3 Year
  Sex: Female
  Weight: 15.88 kg

DRUGS (4)
  1. CETIRIZINE HCL ORAL SOLUTION ALLERGY 1 MG/ML OTC [Suspect]
     Indication: RHINORRHOEA
     Route: 048
     Dates: start: 201302
  2. CETIRIZINE HCL ORAL SOLUTION ALLERGY 1 MG/ML OTC [Suspect]
     Route: 048
     Dates: start: 201302
  3. CETIRIZINE HCL ORAL SOLUTION ALLERGY 1 MG/ML OTC [Suspect]
     Indication: SNEEZING
     Route: 048
     Dates: start: 201302
  4. CHEWABLE MULTIVITAMIN [Concomitant]

REACTIONS (1)
  - Pyrexia [Recovered/Resolved]
